FAERS Safety Report 18968961 (Version 1)
Quarter: 2021Q1

REPORT INFORMATION
  Report Type: Spontaneous
  Country: CA (occurrence: CA)
  Receive Date: 20210304
  Receipt Date: 20210304
  Transmission Date: 20210420
  Serious: Yes (Hospitalization, Other)
  Sender: FDA-Public Use
  Company Number: CA-PFIZER INC-2020488082

PATIENT
  Age: 37 Year
  Sex: Female

DRUGS (1)
  1. RUXIENCE [Suspect]
     Active Substance: RITUXIMAB-PVVR
     Indication: GRANULOMATOSIS WITH POLYANGIITIS
     Dosage: 1 G, ON DAY 1 AND DAY 15 (EVERY 2 WEEKS)
     Route: 042
     Dates: start: 20210223, end: 20210223

REACTIONS (7)
  - Pancreatitis [Unknown]
  - Oxygen saturation decreased [Unknown]
  - Pallor [Unknown]
  - Pseudocyst [Unknown]
  - Condition aggravated [Unknown]
  - Off label use [Unknown]
  - Heart rate increased [Unknown]

NARRATIVE: CASE EVENT DATE: 20210223
